FAERS Safety Report 6373995-7 (Version None)
Quarter: 2009Q3

REPORT INFORMATION
  Report Type: 
  Country: None (occurrence: None)
  Receive Date: 20090922
  Receipt Date: 20090922
  Transmission Date: 20100115
  Serious: Yes (Life-Threatening, Hospitalization)
  Sender: FDA-Public Use
  Company Number: None

PATIENT
  Age: 47 Year
  Sex: Female
  Weight: 91 kg

DRUGS (7)
  1. HALOPERIDOL [Suspect]
     Indication: AGITATION
     Dosage: 5 MG X 1 IV BOLUS
     Route: 040
     Dates: start: 20090710, end: 20090710
  2. HALOPERIDOL [Suspect]
     Indication: HALLUCINATION
     Dosage: 5 MG X 1 IV BOLUS
     Route: 040
     Dates: start: 20090710, end: 20090710
  3. SEROQUEL [Concomitant]
  4. LORAZEPAM [Concomitant]
  5. DEPAKOTE [Concomitant]
  6. ABILIFY [Concomitant]
  7. PRISTIQ [Concomitant]

REACTIONS (2)
  - MUSCLE TWITCHING [None]
  - NEUROLEPTIC MALIGNANT SYNDROME [None]
